FAERS Safety Report 5288172-0 (Version None)
Quarter: 2007Q1

REPORT INFORMATION
  Report Type: 
  Country: None (occurrence: None)
  Receive Date: 20070330
  Receipt Date: 20070322
  Transmission Date: 20070707
  Serious: Yes (Death, Other)
  Sender: FDA-Public Use
  Company Number: 2007S1000173

PATIENT
  Sex: Female

DRUGS (1)
  1. CUBICIN [Suspect]
     Indication: ENDOCARDITIS

REACTIONS (3)
  - AORTIC VALVE REPLACEMENT [None]
  - INTESTINAL INFARCTION [None]
  - POST PROCEDURAL COMPLICATION [None]
